FAERS Safety Report 7788180-1 (Version None)
Quarter: 2011Q3

REPORT INFORMATION
  Report Type: 
  Country: None (occurrence: None)
  Receive Date: 20110927
  Receipt Date: 20110920
  Transmission Date: 20111222
  Serious: Yes (Other)
  Sender: FDA-Public Use
  Company Number: OSCN-PR-1109S-0190

PATIENT
  Sex: Male

DRUGS (2)
  1. OPTIMARK [Suspect]
     Indication: PRODUCT USED FOR UNKNOWN INDICATION
     Dates: start: 20051215, end: 20051215
  2. OMNISCAN [Suspect]
     Indication: PRODUCT USED FOR UNKNOWN INDICATION
     Dates: start: 20040923, end: 20040923

REACTIONS (1)
  - NEPHROGENIC SYSTEMIC FIBROSIS [None]
